FAERS Safety Report 19026294 (Version 2)
Quarter: 2021Q1

REPORT INFORMATION
  Report Type: Spontaneous
  Country: CN (occurrence: CN)
  Receive Date: 20210318
  Receipt Date: 20210323
  Transmission Date: 20210420
  Serious: Yes (Hospitalization)
  Sender: FDA-Public Use
  Company Number: CN-ELI_LILLY_AND_COMPANY-CN202103006201

PATIENT
  Age: 28 Year
  Sex: Male
  Weight: 80 kg

DRUGS (3)
  1. TALTZ [Suspect]
     Active Substance: IXEKIZUMAB
     Indication: PSORIASIS
     Dosage: 80 MG, BID
     Route: 058
     Dates: start: 20201105
  2. TALTZ [Suspect]
     Active Substance: IXEKIZUMAB
     Dosage: 80 MG, EVERY 4 WEEKS
     Route: 058
     Dates: start: 20201105
  3. TALTZ [Suspect]
     Active Substance: IXEKIZUMAB
     Dosage: 80 MG, EVERY 2 WEEKS
     Route: 058
     Dates: start: 20201105

REACTIONS (5)
  - Dizziness [Recovering/Resolving]
  - Hypersensitivity [Recovering/Resolving]
  - Heart rate increased [Unknown]
  - Blood pressure decreased [Unknown]
  - Hiccups [Unknown]

NARRATIVE: CASE EVENT DATE: 20210311
